FAERS Safety Report 8652397 (Version 3)
Quarter: 2012Q4

REPORT INFORMATION
  Report Type: Report from Study
  Country: BY (occurrence: BY)
  Receive Date: 20120706
  Receipt Date: 20120830
  Transmission Date: 20130627
  Serious: Yes (Hospitalization, Other)
  Sender: FDA-Public Use
  Company Number: BY-ROCHE-1083190

PATIENT
  Age: 67 Year
  Sex: Male
  Weight: 76 kg

DRUGS (3)
  1. MABTHERA [Suspect]
     Indication: CHRONIC LYMPHOCYTIC LEUKAEMIA
     Dosage: Last dose prio to SAE on 27/Feb/2012
     Route: 042
     Dates: start: 20111011
  2. CLADRIBINE [Suspect]
     Indication: CHRONIC LYMPHOCYTIC LEUKAEMIA
     Dosage: 0.12 mg\kg\day;Last dose prior to SAE on 01/mar/2012
     Route: 042
     Dates: start: 20111012
  3. CYCLOPHOSPHAMIDE [Suspect]
     Indication: CHRONIC LYMPHOCYTIC LEUKAEMIA
     Dosage: 250 mg\kg\day; Last dose prior to SAE on 01/Mar/2012
     Route: 042
     Dates: start: 20111012

REACTIONS (1)
  - Acute leukaemia [Recovered/Resolved with Sequelae]
